FAERS Safety Report 5812010-8 (Version None)
Quarter: 2008Q3

REPORT INFORMATION
  Report Type: 
  Country: None (occurrence: None)
  Receive Date: 20080716
  Receipt Date: 20080709
  Transmission Date: 20090109
  Serious: Yes (Other)
  Sender: FDA-Public Use
  Company Number: US-GILEAD-2008-0017182

PATIENT
  Sex: Female
  Weight: 43.13 kg

DRUGS (1)
  1. LETAIRIS [Suspect]
     Indication: PULMONARY ARTERIAL HYPERTENSION
     Route: 048
     Dates: start: 20080619, end: 20080621

REACTIONS (6)
  - DRUG INTOLERANCE [None]
  - DRY THROAT [None]
  - DYSPHAGIA [None]
  - OCULAR HYPERAEMIA [None]
  - OCULAR ICTERUS [None]
  - YELLOW SKIN [None]
